FAERS Safety Report 6191385-7 (Version None)
Quarter: 2009Q2

REPORT INFORMATION
  Report Type: 
  Country: None (occurrence: None)
  Receive Date: 20090515
  Receipt Date: 20090507
  Transmission Date: 20091009
  Serious: Yes (Other)
  Sender: FDA-Public Use
  Company Number: ZA-AVENTIS-200914430GDDC

PATIENT
  Age: 26 Year
  Sex: Female

DRUGS (2)
  1. KETEK [Suspect]
     Indication: SINOBRONCHITIS
     Route: 048
  2. PROSPAN                            /00381502/ [Concomitant]
     Route: 048

REACTIONS (1)
  - EPILEPSY [None]
